FAERS Safety Report 7239552-5 (Version None)
Quarter: 2011Q1

REPORT INFORMATION
  Report Type: 
  Country: None (occurrence: None)
  Receive Date: 20110121
  Receipt Date: 20100708
  Transmission Date: 20110831
  Serious: No
  Sender: FDA-Public Use
  Company Number: US-PFIZER INC-2010082195

PATIENT
  Sex: Male
  Weight: 99.773 kg

DRUGS (1)
  1. NIFEDIPINE [Suspect]
     Indication: HYPERTENSION
     Dosage: 30 MG, 1X/DAY
     Dates: start: 20100412, end: 20100525

REACTIONS (4)
  - JOINT SWELLING [None]
  - ASTHENIA [None]
  - CONSTIPATION [None]
  - FATIGUE [None]
